FAERS Safety Report 14409353 (Version 1)
Quarter: 2018Q1

REPORT INFORMATION
  Report Type: Spontaneous
  Country: US (occurrence: US)
  Receive Date: 20180119
  Receipt Date: 20180119
  Transmission Date: 20180509
  Serious: Yes (Other)
  Sender: FDA-Public Use
  Company Number: US-GLAXOSMITHKLINE-US2018007728

PATIENT
  Age: 60 Year
  Sex: Male

DRUGS (3)
  1. INFLUENZA SHOT [Concomitant]
     Active Substance: INFLUENZA VIRUS VACCINE
  2. BREO ELLIPTA [Suspect]
     Active Substance: FLUTICASONE FUROATE\VILANTEROL TRIFENATATE
     Indication: ASTHMA EXERCISE INDUCED
     Dosage: 1 PUFF(S), 1D
     Route: 055
  3. BREO ELLIPTA [Suspect]
     Active Substance: FLUTICASONE FUROATE\VILANTEROL TRIFENATATE
     Indication: CHRONIC OBSTRUCTIVE PULMONARY DISEASE

REACTIONS (5)
  - Sinusitis [Recovered/Resolved]
  - Dyspnoea [Not Recovered/Not Resolved]
  - Renal function test abnormal [Not Recovered/Not Resolved]
  - Wheezing [Not Recovered/Not Resolved]
  - Total lung capacity decreased [Not Recovered/Not Resolved]

NARRATIVE: CASE EVENT DATE: 201707
